FAERS Safety Report 16821543 (Version 1)
Quarter: 2019Q3

REPORT INFORMATION
  Report Type: Spontaneous
  Country: FR (occurrence: FR)
  Receive Date: 20190918
  Receipt Date: 20190918
  Transmission Date: 20191005
  Serious: Yes (Other)
  Sender: FDA-Public Use
  Company Number: FR-PFIZER INC-2019394306

PATIENT
  Age: 40 Year
  Sex: Male

DRUGS (4)
  1. ALPRAZOLAM. [Suspect]
     Active Substance: ALPRAZOLAM
     Dosage: UNK
     Route: 065
  2. DAFALGAN CODEINE [Suspect]
     Active Substance: ACETAMINOPHEN\CODEINE PHOSPHATE
     Dosage: UNK
     Route: 065
  3. PRAZEPAM [Suspect]
     Active Substance: PRAZEPAM
     Dosage: 6 DF, 1X/DAY
     Route: 065
  4. LORMETAZEPAM [Suspect]
     Active Substance: LORMETAZEPAM
     Dosage: 5 DF, 1X/DAY
     Route: 065

REACTIONS (3)
  - Drug use disorder [Not Recovered/Not Resolved]
  - Overdose [Not Recovered/Not Resolved]
  - Drug abuser [Not Recovered/Not Resolved]
